FAERS Safety Report 18596731 (Version 7)
Quarter: 2021Q3

REPORT INFORMATION
  Report Type: Report from Study
  Country: DE (occurrence: DE)
  Receive Date: 20201209
  Receipt Date: 20210810
  Transmission Date: 20211014
  Serious: Yes (Life-Threatening, Hospitalization, Other)
  Sender: FDA-Public Use
  Company Number: DE-TAKEDA-2020TUS054335

PATIENT
  Age: 2 Year
  Sex: Male

DRUGS (20)
  1. TEDUGLUTIDE [Suspect]
     Active Substance: TEDUGLUTIDE
     Indication: SHORT-BOWEL SYNDROME
     Dosage: 0.5 MILLIGRAM (TED DOSES PER 0.0500 MG/KG, TED DOSES PER WEEK 7)
     Route: 065
     Dates: start: 20201015
  2. TEDUGLUTIDE [Suspect]
     Active Substance: TEDUGLUTIDE
     Dosage: 0.500 MILLIGRAM (0.0500 MG/KG), QD
     Route: 065
     Dates: start: 20201015, end: 20210615
  3. TEDUGLUTIDE [Suspect]
     Active Substance: TEDUGLUTIDE
     Dosage: 0.550 MILLIGRAM ( 0.0500 MG/KG) , QD
     Route: 065
     Dates: start: 20210706
  4. MEROPENEM. [Concomitant]
     Active Substance: MEROPENEM
     Dosage: 200 MILLIGRAM, TID
     Route: 042
     Dates: start: 20201002, end: 20201012
  5. VANCOMYCIN [Concomitant]
     Active Substance: VANCOMYCIN
     Indication: ACINETOBACTER SEPSIS
     Dosage: 120 MILLIGRAM, QD
     Route: 042
     Dates: start: 20201013, end: 20201013
  6. TEDUGLUTIDE [Suspect]
     Active Substance: TEDUGLUTIDE
     Dosage: 0.500 MILLIGRAM (0.0500 MG/KG), QD
     Route: 065
     Dates: start: 20201015, end: 20210615
  7. MEROPENEM. [Concomitant]
     Active Substance: MEROPENEM
     Dosage: 200 MILLIGRAM, QID
     Route: 042
     Dates: start: 20201013, end: 20201013
  8. FLUCONAZOL [Concomitant]
     Active Substance: FLUCONAZOLE
     Indication: SEPSIS
     Dosage: 60 MILLIGRAM, QD
     Route: 042
     Dates: start: 20210616, end: 20210623
  9. TEDUGLUTIDE [Suspect]
     Active Substance: TEDUGLUTIDE
     Indication: SHORT-BOWEL SYNDROME
     Dosage: 0.5 MILLIGRAM (TED DOSES PER 0.0500 MG/KG, TED DOSES PER WEEK 7)
     Route: 065
     Dates: start: 20201015
  10. TEDUGLUTIDE [Suspect]
     Active Substance: TEDUGLUTIDE
     Dosage: 0.550 MILLIGRAM ( 0.0500 MG/KG) , QD
     Route: 065
     Dates: start: 20210706
  11. TEDUGLUTIDE [Suspect]
     Active Substance: TEDUGLUTIDE
     Indication: SHORT-BOWEL SYNDROME
     Dosage: 0.5 MILLIGRAM (TED DOSES PER 0.0500 MG/KG, TED DOSES PER WEEK 7)
     Route: 065
     Dates: start: 20201015
  12. TEDUGLUTIDE [Suspect]
     Active Substance: TEDUGLUTIDE
     Dosage: 0.500 MILLIGRAM (0.0500 MG/KG), QD
     Route: 065
     Dates: start: 20201015, end: 20210615
  13. TEDUGLUTIDE [Suspect]
     Active Substance: TEDUGLUTIDE
     Dosage: 0.500 MILLIGRAM (0.0500 MG/KG), QD
     Route: 065
     Dates: start: 20201015, end: 20210615
  14. TEDUGLUTIDE [Suspect]
     Active Substance: TEDUGLUTIDE
     Dosage: 0.550 MILLIGRAM ( 0.0500 MG/KG) , QD
     Route: 065
     Dates: start: 20210706
  15. MEROPENEM. [Concomitant]
     Active Substance: MEROPENEM
     Indication: ACINETOBACTER SEPSIS
     Dosage: 200 MILLIGRAM, QD
     Route: 042
     Dates: start: 20201014, end: 20201014
  16. CEFTAZIDIM [Concomitant]
     Active Substance: CEFTAZIDIME
     Indication: SEPSIS
     Dosage: 20 MILLIGRAM, Q72H
     Route: 042
     Dates: start: 20210521, end: 20210604
  17. TEDUGLUTIDE [Suspect]
     Active Substance: TEDUGLUTIDE
     Dosage: 0.550 MILLIGRAM ( 0.0500 MG/KG) , QD
     Route: 065
     Dates: start: 20210706
  18. BACLOFEN. [Concomitant]
     Active Substance: BACLOFEN
     Indication: LEUKOENCEPHALOPATHY
     Dosage: 1 MILLIGRAM, TID
     Route: 048
     Dates: start: 202106
  19. PIPERACILLIN AND TAZOBACTAM [Concomitant]
     Active Substance: PIPERACILLIN SODIUM\TAZOBACTAM SODIUM
     Indication: SEPSIS
     Dosage: 730 MILLIGRAM, TID
     Route: 042
     Dates: start: 20210610, end: 20210624
  20. TEDUGLUTIDE [Suspect]
     Active Substance: TEDUGLUTIDE
     Indication: SHORT-BOWEL SYNDROME
     Dosage: 0.5 MILLIGRAM (TED DOSES PER 0.0500 MG/KG, TED DOSES PER WEEK 7)
     Route: 065
     Dates: start: 20201015

REACTIONS (8)
  - Device dislocation [Recovered/Resolved]
  - Gastrointestinal haemorrhage [Recovered/Resolved]
  - Catheter removal [Recovered/Resolved]
  - Device defective [Recovered/Resolved]
  - Device related sepsis [Not Recovered/Not Resolved]
  - Pyrexia [Recovered/Resolved]
  - Multiple organ dysfunction syndrome [Recovered/Resolved with Sequelae]
  - Urinary bladder haemorrhage [Recovered/Resolved with Sequelae]

NARRATIVE: CASE EVENT DATE: 20201126
